FAERS Safety Report 12142460 (Version 1)
Quarter: 2016Q1

REPORT INFORMATION
  Report Type: Report from Study
  Country: US (occurrence: US)
  Receive Date: 20160303
  Receipt Date: 20160303
  Transmission Date: 20160526
  Serious: Yes (Other)
  Sender: FDA-Public Use
  Company Number: US-KADMON PHARMACEUTICALS, LLC-KAD201308-001083

PATIENT
  Age: 45 Year
  Sex: Female
  Weight: 88 kg

DRUGS (3)
  1. RIBAVIRIN. [Suspect]
     Active Substance: RIBAVIRIN
     Indication: INFLUENZA
     Dosage: SOLUTION
     Route: 048
  2. SYMMETREL [Suspect]
     Active Substance: AMANTADINE HYDROCHLORIDE
     Indication: INFLUENZA
     Dosage: SOLUTION
     Route: 048
  3. TAMIFLU [Suspect]
     Active Substance: OSELTAMIVIR PHOSPHATE
     Indication: INFLUENZA
     Dosage: SOLUTION
     Route: 048

REACTIONS (2)
  - Respiratory failure [Recovered/Resolved]
  - Acute respiratory distress syndrome [Unknown]
